FAERS Safety Report 5077903-0 (Version None)
Quarter: 2006Q3

REPORT INFORMATION
  Report Type: 
  Country: None (occurrence: None)
  Receive Date: 20060725
  Receipt Date: 20060405
  Transmission Date: 20061208
  Serious: No
  Sender: FDA-Public Use
  Company Number: 06-000307

PATIENT
  Age: 57 Year
  Sex: Female

DRUGS (3)
  1. FEMHRT [Suspect]
     Indication: MENOPAUSAL SYMPTOMS
     Dosage: 5/1000
     Dates: start: 19940101, end: 20000101
  2. COMBIPATCH [Suspect]
     Indication: MENOPAUSAL SYMPTOMS
     Dates: start: 19940101, end: 20000101
  3. ESTRATAB [Suspect]
     Indication: MENOPAUSAL SYMPTOMS
     Dates: start: 19940101, end: 20000101

REACTIONS (1)
  - BREAST CANCER [None]
